FAERS Safety Report 21938202 (Version 1)
Quarter: 2023Q1

REPORT INFORMATION
  Report Type: Spontaneous
  Country: US (occurrence: US)
  Receive Date: 20230201
  Receipt Date: 20230201
  Transmission Date: 20230418
  Serious: Yes (Other)
  Sender: FDA-Public Use
  Company Number: US-Millicent Holdings Ltd.-MILL20230024

PATIENT
  Age: 67 Year
  Sex: Female

DRUGS (2)
  1. FEMRING [Suspect]
     Active Substance: ESTRADIOL ACETATE
     Indication: Hormone replacement therapy
     Dosage: 0.05 MG / DAY; EVERY 3 MONTHS
     Route: 067
     Dates: start: 2002, end: 2022
  2. FEMRING [Suspect]
     Active Substance: ESTRADIOL ACETATE
     Indication: Menopause

REACTIONS (1)
  - Intraductal proliferative breast lesion [Recovering/Resolving]

NARRATIVE: CASE EVENT DATE: 20220101
